FAERS Safety Report 12495126 (Version 1)
Quarter: 2016Q2

REPORT INFORMATION
  Report Type: Spontaneous
  Country: US (occurrence: US)
  Receive Date: 20160624
  Receipt Date: 20160624
  Transmission Date: 20160815
  Serious: Yes (Other)
  Sender: FDA-Public Use
  Company Number: US-JNJCP-30000341852

PATIENT
  Sex: Female

DRUGS (3)
  1. AVEENO NOS [Suspect]
     Active Substance: DIMETHICONE OR HOMOSALATE\OCTINOXATE\OCTISALATE\TITANIUM DIOXIDE
     Indication: PRODUCT USED FOR UNKNOWN INDICATION
     Dosage: ONCE DAILY
     Route: 061
  2. AVEENO NOS [Suspect]
     Active Substance: DIMETHICONE OR HOMOSALATE\OCTINOXATE\OCTISALATE\TITANIUM DIOXIDE
     Indication: PRODUCT USED FOR UNKNOWN INDICATION
     Dosage: ONCE DAILY
     Route: 061
  3. AVEENO NOS [Suspect]
     Active Substance: DIMETHICONE OR HOMOSALATE\OCTINOXATE\OCTISALATE\TITANIUM DIOXIDE
     Indication: PRODUCT USED FOR UNKNOWN INDICATION
     Dosage: ONCE DAILY
     Route: 061

REACTIONS (2)
  - Malaise [Not Recovered/Not Resolved]
  - Skin cancer [Not Recovered/Not Resolved]
